FAERS Safety Report 4303987-0 (Version None)
Quarter: 2004Q1

REPORT INFORMATION
  Report Type: 
  Country: None (occurrence: None)
  Receive Date: 20040225
  Receipt Date: 20040113
  Transmission Date: 20041129
  Serious: Yes (Other)
  Sender: FDA-Public Use
  Company Number: MX-BRISTOL-MYERS SQUIBB COMPANY-12479838

PATIENT
  Age: 43 Year
  Sex: Female

DRUGS (4)
  1. MURAGLITAZAR [Suspect]
     Indication: DIABETES MELLITUS NON-INSULIN-DEPENDENT
     Route: 048
     Dates: start: 20031113, end: 20040112
  2. METFORMIN HCL [Suspect]
     Route: 048
     Dates: start: 20030701, end: 20040112
  3. FLUCONAZOLE [Suspect]
     Route: 048
     Dates: start: 20031222, end: 20031224
  4. RUBELLA VACCINE [Suspect]
     Dates: start: 20031120, end: 20031120

REACTIONS (3)
  - ABORTION INDUCED [None]
  - BLIGHTED OVUM [None]
  - PREGNANCY [None]
